FAERS Safety Report 4685478-0 (Version None)
Quarter: 2005Q2

REPORT INFORMATION
  Report Type: 
  Country: None (occurrence: None)
  Receive Date: 20050608
  Receipt Date: 20050531
  Transmission Date: 20051028
  Serious: Yes (Other)
  Sender: FDA-Public Use
  Company Number: PHBS2005IT07794

PATIENT
  Age: 65 Year
  Sex: Female

DRUGS (2)
  1. ZOMETA [Suspect]
     Indication: MULTIPLE MYELOMA
     Dosage: 4 MG, QMO
     Route: 042
     Dates: start: 20021126
  2. PEGINTERFERON ALFA-2B [Suspect]
     Indication: MULTIPLE MYELOMA
     Dosage: 35 MCG/WEEK
     Route: 058
     Dates: start: 20020920, end: 20050325

REACTIONS (3)
  - BLOOD THYROID STIMULATING HORMONE INCREASED [None]
  - PRIMARY HYPOTHYROIDISM [None]
  - THYROXINE FREE DECREASED [None]
